FAERS Safety Report 17132975 (Version 3)
Quarter: 2020Q1

REPORT INFORMATION
  Report Type: Spontaneous
  Country: BR (occurrence: BR)
  Receive Date: 20191210
  Receipt Date: 20200307
  Transmission Date: 20200409
  Serious: Yes (Other)
  Sender: FDA-Public Use
  Company Number: BR-AMGEN-BRASP2015003456

PATIENT
  Age: 76 Year
  Sex: Female

DRUGS (1)
  1. ENBREL [Suspect]
     Active Substance: ETANERCEPT
     Indication: PRODUCT USED FOR UNKNOWN INDICATION
     Dosage: UNK
     Route: 065
     Dates: start: 201412, end: 2018

REACTIONS (9)
  - Product dose omission [Unknown]
  - Drug ineffective [Recovered/Resolved]
  - Urinary tract infection [Recovering/Resolving]
  - Accident [Unknown]
  - Pain [Recovered/Resolved]
  - Malaise [Unknown]
  - Asthenia [Unknown]
  - Abdominal discomfort [Unknown]
  - Lower limb fracture [Unknown]

NARRATIVE: CASE EVENT DATE: 201503
